FAERS Safety Report 5956610-3 (Version None)
Quarter: 2008Q4

REPORT INFORMATION
  Report Type: 
  Country: None (occurrence: None)
  Receive Date: 20081117
  Receipt Date: 20081117
  Transmission Date: 20090506
  Serious: Yes (Hospitalization)
  Sender: FDA-Public Use
  Company Number: None

PATIENT
  Age: 33 Year
  Sex: Male
  Weight: 97.5 kg

DRUGS (1)
  1. DIVALPROEX SODIUM [Suspect]
     Indication: BIPOLAR DISORDER
     Dosage: 1500 MG EVERY DAY PO
     Route: 048
     Dates: start: 20081030, end: 20081107

REACTIONS (4)
  - DYSKINESIA [None]
  - FATIGUE [None]
  - HALLUCINATION [None]
  - RENAL FAILURE ACUTE [None]
